FAERS Safety Report 5420278-5 (Version None)
Quarter: 2007Q3

REPORT INFORMATION
  Report Type: 
  Country: None (occurrence: None)
  Receive Date: 20070815
  Receipt Date: 20070731
  Transmission Date: 20080115
  Serious: Yes (Other)
  Sender: FDA-Public Use
  Company Number: 2007JP003662

PATIENT
  Age: 42 Year
  Sex: Male

DRUGS (2)
  1. PROGRAF [Suspect]
     Indication: CORD BLOOD TRANSPLANT THERAPY
  2. IMATINIB (IMATINIB) FORMULATION UNKNOWN [Concomitant]

REACTIONS (6)
  - CEREBRAL ATROPHY [None]
  - CONVULSION [None]
  - ENCEPHALITIS [None]
  - HERPES SIMPLEX [None]
  - HUMAN HERPESVIRUS 6 INFECTION [None]
  - KORSAKOFF'S PSYCHOSIS NON-ALCOHOLIC [None]
